FAERS Safety Report 9911588 (Version 1)
Quarter: 2014Q1

REPORT INFORMATION
  Report Type: Spontaneous
  Country: US (occurrence: US)
  Receive Date: 20140219
  Receipt Date: 20140219
  Transmission Date: 20141002
  Serious: Yes (Hospitalization)
  Sender: FDA-Public Use
  Company Number: PHHY2014US016671

PATIENT
  Age: 53 Year
  Sex: Male

DRUGS (4)
  1. QUETIAPINE [Suspect]
     Dosage: 300 MG, UNK
  2. QUETIAPINE [Suspect]
     Dosage: 600 MG, UNK
  3. QUETIAPINE [Suspect]
     Dosage: 200 MG DAILY
  4. METFORMIN [Concomitant]
     Indication: DIABETES MELLITUS

REACTIONS (9)
  - Type 2 diabetes mellitus [Unknown]
  - Ketoacidosis [Unknown]
  - Nausea [Unknown]
  - Vomiting [Unknown]
  - Polyuria [Unknown]
  - Polydipsia [Unknown]
  - Mucosal dryness [Unknown]
  - Blood glucose increased [Unknown]
  - Concomitant disease aggravated [Unknown]
